FAERS Safety Report 25287472 (Version 1)
Quarter: 2025Q2

REPORT INFORMATION
  Report Type: Spontaneous
  Country: FR (occurrence: FR)
  Receive Date: 20250509
  Receipt Date: 20250509
  Transmission Date: 20250717
  Serious: Yes (Death)
  Sender: MYLAN
  Company Number: None

PATIENT
  Age: 98 Year
  Sex: Female
  Weight: 52.6 kg

DRUGS (28)
  1. PANTOPRAZOLE [Suspect]
     Active Substance: PANTOPRAZOLE
     Indication: Product used for unknown indication
     Dates: start: 20250320, end: 20250320
  2. PANTOPRAZOLE [Suspect]
     Active Substance: PANTOPRAZOLE
     Route: 048
     Dates: start: 20250320, end: 20250320
  3. PANTOPRAZOLE [Suspect]
     Active Substance: PANTOPRAZOLE
     Route: 048
     Dates: start: 20250320, end: 20250320
  4. PANTOPRAZOLE [Suspect]
     Active Substance: PANTOPRAZOLE
     Dates: start: 20250320, end: 20250320
  5. RAMIPRIL [Suspect]
     Active Substance: RAMIPRIL
     Indication: Product used for unknown indication
     Dates: start: 20250320, end: 20250320
  6. RAMIPRIL [Suspect]
     Active Substance: RAMIPRIL
     Route: 048
     Dates: start: 20250320, end: 20250320
  7. RAMIPRIL [Suspect]
     Active Substance: RAMIPRIL
     Route: 048
     Dates: start: 20250320, end: 20250320
  8. RAMIPRIL [Suspect]
     Active Substance: RAMIPRIL
     Dates: start: 20250320, end: 20250320
  9. REPAGLINIDE [Suspect]
     Active Substance: REPAGLINIDE
     Indication: Product used for unknown indication
     Dates: start: 20250320, end: 20250320
  10. REPAGLINIDE [Suspect]
     Active Substance: REPAGLINIDE
     Route: 048
     Dates: start: 20250320, end: 20250320
  11. REPAGLINIDE [Suspect]
     Active Substance: REPAGLINIDE
     Route: 048
     Dates: start: 20250320, end: 20250320
  12. REPAGLINIDE [Suspect]
     Active Substance: REPAGLINIDE
     Dates: start: 20250320, end: 20250320
  13. GABAPENTIN [Suspect]
     Active Substance: GABAPENTIN
     Indication: Product used for unknown indication
     Dates: start: 20250320, end: 20250320
  14. GABAPENTIN [Suspect]
     Active Substance: GABAPENTIN
     Route: 048
     Dates: start: 20250320, end: 20250320
  15. GABAPENTIN [Suspect]
     Active Substance: GABAPENTIN
     Route: 048
     Dates: start: 20250320, end: 20250320
  16. GABAPENTIN [Suspect]
     Active Substance: GABAPENTIN
     Dates: start: 20250320, end: 20250320
  17. ELIQUIS [Suspect]
     Active Substance: APIXABAN
     Indication: Product used for unknown indication
     Dates: start: 20250320, end: 20250320
  18. ELIQUIS [Suspect]
     Active Substance: APIXABAN
     Route: 048
     Dates: start: 20250320, end: 20250320
  19. ELIQUIS [Suspect]
     Active Substance: APIXABAN
     Route: 048
     Dates: start: 20250320, end: 20250320
  20. ELIQUIS [Suspect]
     Active Substance: APIXABAN
     Dates: start: 20250320, end: 20250320
  21. OXAZEPAM [Suspect]
     Active Substance: OXAZEPAM
     Indication: Product used for unknown indication
     Dates: start: 20250320, end: 20250320
  22. OXAZEPAM [Suspect]
     Active Substance: OXAZEPAM
     Route: 048
     Dates: start: 20250320, end: 20250320
  23. OXAZEPAM [Suspect]
     Active Substance: OXAZEPAM
     Route: 048
     Dates: start: 20250320, end: 20250320
  24. OXAZEPAM [Suspect]
     Active Substance: OXAZEPAM
     Dates: start: 20250320, end: 20250320
  25. DAFALGAN [Suspect]
     Active Substance: ACETAMINOPHEN
     Indication: Product used for unknown indication
     Dates: start: 20250320, end: 20250320
  26. DAFALGAN [Suspect]
     Active Substance: ACETAMINOPHEN
     Route: 048
     Dates: start: 20250320, end: 20250320
  27. DAFALGAN [Suspect]
     Active Substance: ACETAMINOPHEN
     Route: 048
     Dates: start: 20250320, end: 20250320
  28. DAFALGAN [Suspect]
     Active Substance: ACETAMINOPHEN
     Dates: start: 20250320, end: 20250320

REACTIONS (4)
  - Hypotension [Fatal]
  - Hypothermia [Fatal]
  - Faecal vomiting [Fatal]
  - Wrong patient received product [Fatal]

NARRATIVE: CASE EVENT DATE: 20250320
